FAERS Safety Report 9186748 (Version 1)
Quarter: 2013Q1

REPORT INFORMATION
  Report Type: Spontaneous
  Country: US (occurrence: US)
  Receive Date: 20130325
  Receipt Date: 20130325
  Transmission Date: 20140127
  Serious: Yes (Hospitalization)
  Sender: FDA-Public Use
  Company Number: US-GENZYME-FABR-1003116

PATIENT
  Sex: Male

DRUGS (1)
  1. FABRAZYME [Suspect]
     Indication: FABRY^S DISEASE
     Dosage: 70 MG, Q2W
     Route: 042
     Dates: start: 2003

REACTIONS (2)
  - Aneurysm [Recovered/Resolved]
  - Thrombosis [Recovered/Resolved]
